FAERS Safety Report 8113964-X (Version None)
Quarter: 2012Q1

REPORT INFORMATION
  Report Type: 
  Country: None (occurrence: None)
  Receive Date: 20120203
  Receipt Date: 20120126
  Transmission Date: 20120608
  Serious: Yes (Other)
  Sender: FDA-Public Use
  Company Number: US-GILEAD-2012-0050035

PATIENT
  Age: 25 Year
  Sex: Female

DRUGS (5)
  1. EMTRICITABINE/TENOFOVIR DISOPROXIL FUMARATE [Suspect]
     Indication: HIV INFECTION
     Dosage: 1 DF, UNK
     Route: 048
     Dates: start: 20110705
  2. COMBIVIR [Concomitant]
     Indication: HIV INFECTION
     Dosage: UNK
     Route: 048
     Dates: start: 20110509, end: 20110705
  3. LOPINAVIR/RITONAVIR [Concomitant]
     Dosage: UNK
     Route: 048
     Dates: start: 20110509, end: 20110705
  4. REYATAZ [Concomitant]
     Indication: HIV INFECTION
     Dosage: UNK
     Route: 048
     Dates: start: 20110705
  5. NORVIR [Concomitant]
     Indication: HIV INFECTION
     Dosage: UNK
     Route: 048
     Dates: start: 20110705

REACTIONS (2)
  - PRE-ECLAMPSIA [None]
  - STILLBIRTH [None]
